FAERS Safety Report 8333738-4 (Version None)
Quarter: 2012Q2

REPORT INFORMATION
  Report Type: 
  Country: None (occurrence: None)
  Receive Date: 20120503
  Receipt Date: 20120503
  Transmission Date: 20120825
  Serious: Yes (Other)
  Sender: FDA-Public Use
  Company Number: None

PATIENT
  Sex: Female
  Weight: 83.007 kg

DRUGS (1)
  1. AZOPT [Suspect]
     Dosage: |DOSAGETEXT: 1 DROP||STRENGTH: 1% -10ML STERILE-||FREQ: 2 TIMES A DAY||ROUTE: OPHTHALMIC|
     Route: 047
     Dates: start: 20120410, end: 20120416

REACTIONS (3)
  - FACIAL PAIN [None]
  - SWELLING FACE [None]
  - SKIN DISCOLOURATION [None]
